FAERS Safety Report 24319714 (Version 1)
Quarter: 2024Q3

REPORT INFORMATION
  Report Type: Report from Study
  Country: CN (occurrence: CN)
  Receive Date: 20240914
  Receipt Date: 20240914
  Transmission Date: 20241017
  Serious: Yes (Death)
  Sender: CHIESI
  Company Number: CN-CHIESI-2024CHF05967

PATIENT
  Sex: Male

DRUGS (2)
  1. CUROSURF [Suspect]
     Active Substance: PORACTANT ALFA
     Indication: Neonatal respiratory distress syndrome
     Dosage: 200 MILLIGRAM
  2. CUROSURF [Suspect]
     Active Substance: PORACTANT ALFA
     Dosage: 200 MILLIGRAM

REACTIONS (3)
  - Ill-defined disorder [Fatal]
  - Prescribed overdose [Fatal]
  - Off label use [Unknown]
